FAERS Safety Report 13422005 (Version 2)
Quarter: 2017Q2

REPORT INFORMATION
  Report Type: Spontaneous
  Country: US (occurrence: US)
  Receive Date: 20170410
  Receipt Date: 20170609
  Transmission Date: 20170830
  Serious: No
  Sender: FDA-Public Use
  Company Number: US-PFIZER INC-2017154210

PATIENT
  Age: 65 Year
  Sex: Female
  Weight: 84.37 kg

DRUGS (8)
  1. IBRANCE [Suspect]
     Active Substance: PALBOCICLIB
     Dosage: 100 MG, CYCLIC [21DAYS ON 7DAYS OFF]
     Dates: start: 20170331, end: 20170420
  2. CALCIUM + VIT D [Concomitant]
     Active Substance: CALCIUM\VITAMIN D
     Indication: BODY HEIGHT DECREASED
     Dosage: UNK
     Dates: start: 2017
  3. XGEVA [Concomitant]
     Active Substance: DENOSUMAB
     Indication: BODY HEIGHT DECREASED
  4. IBRANCE [Suspect]
     Active Substance: PALBOCICLIB
     Indication: BREAST CANCER METASTATIC
     Dosage: 125 MG, CYCLIC [21DAYS ON 7DAYS OFF]
     Dates: start: 20170210, end: 20170302
  5. FEMARA [Suspect]
     Active Substance: LETROZOLE
     Indication: BONE CANCER METASTATIC
     Dosage: 2.5 MG, 1X/DAY
     Dates: start: 20170203
  6. VITAMIN D2 [Concomitant]
     Active Substance: ERGOCALCIFEROL
     Dosage: UNK
     Dates: start: 20170427
  7. IBRANCE [Suspect]
     Active Substance: PALBOCICLIB
     Dosage: 75 MG, CYCLIC [21DAYS ON 7DAYS OFF]
     Dates: start: 20170504
  8. XGEVA [Concomitant]
     Active Substance: DENOSUMAB
     Indication: BONE DISORDER
     Dosage: 120 MG, MONTHLY
     Dates: start: 20170309

REACTIONS (4)
  - Muscle tightness [Unknown]
  - White blood cell count decreased [Not Recovered/Not Resolved]
  - Adrenal disorder [Unknown]
  - Gastrointestinal motility disorder [Unknown]

NARRATIVE: CASE EVENT DATE: 20170309
